FAERS Safety Report 13300110 (Version 2)
Quarter: 2017Q1

REPORT INFORMATION
  Report Type: Spontaneous
  Country: GB (occurrence: GB)
  Receive Date: 20170306
  Receipt Date: 20170318
  Transmission Date: 20170428
  Serious: Yes (Other)
  Sender: FDA-Public Use
  Company Number: GB-AMGEN-GBRSP2017034286

PATIENT
  Age: 36 Year
  Sex: Female

DRUGS (1)
  1. ENBREL [Suspect]
     Active Substance: ETANERCEPT
     Indication: PRODUCT USED FOR UNKNOWN INDICATION
     Dosage: 50 MG, UNK
     Route: 058

REACTIONS (8)
  - Tremor [Unknown]
  - Malaise [Unknown]
  - Feeling abnormal [Unknown]
  - Irritability [Unknown]
  - White blood cell count decreased [Unknown]
  - Fatigue [Unknown]
  - Blood glucose decreased [Unknown]
  - Night sweats [Unknown]
